FAERS Safety Report 8053182-7 (Version None)
Quarter: 2012Q1

REPORT INFORMATION
  Report Type: 
  Country: None (occurrence: None)
  Receive Date: 20120118
  Receipt Date: 20120113
  Transmission Date: 20120608
  Serious: No
  Sender: FDA-Public Use
  Company Number: US-B.I. PHARMACEUTICALS,INC./RIDGEFIELD-2012-BP-00821BP

PATIENT
  Age: 77 Year
  Sex: Male

DRUGS (7)
  1. CARDORA [Concomitant]
     Dosage: 10 MG
     Route: 048
  2. TRADJENTA [Suspect]
     Indication: TYPE 2 DIABETES MELLITUS
     Dosage: 5 MG
     Route: 048
     Dates: start: 20111223
  3. MICARDIS [Suspect]
     Indication: BLOOD PRESSURE
     Route: 048
     Dates: end: 20120112
  4. PROTONIX [Concomitant]
     Indication: GASTROINTESTINAL HAEMORRHAGE
     Dosage: 40 MG
     Route: 048
  5. DISOPROXIL [Concomitant]
     Route: 048
  6. COUMADIN [Concomitant]
     Indication: ANTICOAGULANT THERAPY
     Route: 048
  7. NIASPAN [Concomitant]
     Indication: BLOOD PRESSURE
     Dosage: 1 G
     Route: 048

REACTIONS (1)
  - BLOOD CREATININE INCREASED [None]
